FAERS Safety Report 8092293-7 (Version None)
Quarter: 2012Q1

REPORT INFORMATION
  Report Type: 
  Country: None (occurrence: None)
  Receive Date: 20120129
  Receipt Date: 20111122
  Transmission Date: 20120608
  Serious: No
  Sender: FDA-Public Use
  Company Number: US-ABBOTT-11P-163-0877041-00

PATIENT
  Age: 65 Year
  Sex: Female

DRUGS (9)
  1. CELEBREX [Concomitant]
     Indication: PRODUCT USED FOR UNKNOWN INDICATION
  2. INDERAL [Concomitant]
     Indication: HYPERTENSION
  3. SINGULAIR [Concomitant]
     Indication: HYPERSENSITIVITY
  4. PRAVASTATIN [Concomitant]
     Indication: BLOOD CHOLESTEROL INCREASED
  5. HUMIRA [Suspect]
     Indication: PSORIATIC ARTHROPATHY
     Dates: start: 20110201
  6. DIOVAN [Concomitant]
     Indication: HYPERTENSION
  7. INDERAL [Concomitant]
     Indication: MIGRAINE
  8. JENUVIA [Concomitant]
     Indication: DIABETES MELLITUS
  9. HYDROCODONE BITARTRATE [Concomitant]
     Indication: PAIN
     Dosage: 5/325MG Q4H PRN

REACTIONS (3)
  - UPPER-AIRWAY COUGH SYNDROME [None]
  - THROAT IRRITATION [None]
  - SINUS CONGESTION [None]
